FAERS Safety Report 7823734-5 (Version None)
Quarter: 2011Q4

REPORT INFORMATION
  Report Type: 
  Country: None (occurrence: None)
  Receive Date: 20111019
  Receipt Date: 20111011
  Transmission Date: 20120403
  Serious: No
  Sender: FDA-Public Use
  Company Number: US-PFIZER INC-2011201728

PATIENT
  Sex: Female

DRUGS (2)
  1. EFFEXOR XR [Suspect]
     Dosage: UNK
  2. PROVERA [Suspect]
     Dosage: UNK

REACTIONS (10)
  - MALAISE [None]
  - VISION BLURRED [None]
  - CHILLS [None]
  - GAIT DISTURBANCE [None]
  - DECREASED APPETITE [None]
  - WITHDRAWAL SYNDROME [None]
  - SLEEP DISORDER [None]
  - PARAESTHESIA [None]
  - MIGRAINE [None]
  - ABNORMAL DREAMS [None]
